FAERS Safety Report 5063635-1 (Version None)
Quarter: 2006Q3

REPORT INFORMATION
  Report Type: 
  Country: None (occurrence: None)
  Receive Date: 20060724
  Receipt Date: 20060711
  Transmission Date: 20061208
  Serious: Yes (Hospitalization)
  Sender: FDA-Public Use
  Company Number: 2006-145005-NL

PATIENT
  Sex: Female

DRUGS (1)
  1. ETONOGESTREL [Suspect]
     Dosage: DF
     Dates: start: 20020101

REACTIONS (5)
  - INFECTION [None]
  - METRORRHAGIA [None]
  - POLYMENORRHOEA [None]
  - PROCEDURAL COMPLICATION [None]
  - SCAR [None]
